FAERS Safety Report 9233658 (Version 1)
Quarter: 2013Q2

REPORT INFORMATION
  Report Type: Spontaneous
  Country: US (occurrence: None)
  Receive Date: 20130412
  Receipt Date: 20130412
  Transmission Date: 20140414
  Serious: Yes (Hospitalization)
  Sender: FDA-Public Use
  Company Number: KV201300062

PATIENT
  Age: 35 Year
  Sex: Female

DRUGS (1)
  1. MAKENA [Suspect]
     Indication: PREMATURE DELIVERY
     Route: 030
     Dates: start: 201206, end: 201209

REACTIONS (1)
  - Premature delivery [None]
